FAERS Safety Report 5629825-1 (Version None)
Quarter: 2008Q1

REPORT INFORMATION
  Report Type: 
  Country: None (occurrence: None)
  Receive Date: 20080218
  Receipt Date: 20080206
  Transmission Date: 20080703
  Serious: Yes (Other)
  Sender: FDA-Public Use
  Company Number: PHEH2006US06798

PATIENT
  Age: 63 Year
  Sex: Male

DRUGS (6)
  1. AREDIA [Suspect]
     Indication: METASTASES TO BONE
     Dosage: 90 MG, QMO
     Dates: start: 19970724, end: 20020417
  2. ZOMETA [Suspect]
     Indication: METASTASES TO BONE
     Dosage: 4 MG MONTHLY
     Dates: start: 20020625, end: 20030101
  3. ZOMETA [Suspect]
     Dosage: EVERY FIVE WEEKS
     Dates: start: 20020101, end: 20030101
  4. CHEMOTHERAPEUTICS,OTHER [Concomitant]
  5. LOPRESSOR [Concomitant]
     Indication: HYPERTENSION
  6. ASPIRIN [Concomitant]
     Dosage: 81 MG, QD
     Route: 048

REACTIONS (38)
  - ABSCESS MANAGEMENT [None]
  - ALVEOLAR OSTEITIS [None]
  - BIOPSY [None]
  - BONE DISORDER [None]
  - BONE FISTULA [None]
  - BONE FRAGMENTATION [None]
  - BONE LESION [None]
  - CARPAL TUNNEL SYNDROME [None]
  - DECREASED INTEREST [None]
  - DEPRESSION [None]
  - EDENTULOUS [None]
  - EMOTIONAL DISTRESS [None]
  - ENDODONTIC PROCEDURE [None]
  - GINGIVAL ABSCESS [None]
  - GINGIVAL INFECTION [None]
  - GINGIVAL OEDEMA [None]
  - GINGIVAL PAIN [None]
  - GINGIVITIS [None]
  - HYPERPLASIA [None]
  - IMPAIRED HEALING [None]
  - INFLAMMATION [None]
  - INTERVERTEBRAL DISC DEGENERATION [None]
  - INTERVERTEBRAL DISC DISORDER [None]
  - LUMBAR SPINAL STENOSIS [None]
  - LYMPHADENOPATHY [None]
  - MULTIPLE MYELOMA [None]
  - OSTEITIS [None]
  - OSTEONECROSIS [None]
  - OSTEOPOROSIS [None]
  - PAIN [None]
  - PAIN IN JAW [None]
  - PARANASAL SINUS DISCOMFORT [None]
  - PHYSICAL DISABILITY [None]
  - SENSITIVITY OF TEETH [None]
  - TEMPOROMANDIBULAR JOINT SYNDROME [None]
  - THERAPEUTIC PROCEDURE [None]
  - TOOTH ABSCESS [None]
  - TOOTH EXTRACTION [None]
